FAERS Safety Report 21749776 (Version 1)
Quarter: 2022Q4

REPORT INFORMATION
  Report Type: Spontaneous
  Country: CZ (occurrence: CZ)
  Receive Date: 20221219
  Receipt Date: 20221219
  Transmission Date: 20230112
  Serious: Yes (Other)
  Sender: FDA-Public Use
  Company Number: None

PATIENT
  Age: 47 Year
  Sex: Female
  Weight: 53 kg

DRUGS (1)
  1. IBANDRONATE SODIUM [Suspect]
     Active Substance: IBANDRONATE SODIUM
     Indication: Product used for unknown indication
     Dosage: UNK, 1 TABLET ONCE A MONTH
     Route: 048
     Dates: start: 20170701, end: 20170701

REACTIONS (8)
  - Chest pain [Unknown]
  - Joint swelling [Unknown]
  - Rheumatoid arthritis [Recovered/Resolved with Sequelae]
  - Oedema peripheral [Unknown]
  - Influenza like illness [Unknown]
  - Pain in extremity [Unknown]
  - Back pain [Unknown]
  - Nausea [Unknown]

NARRATIVE: CASE EVENT DATE: 20170701
